FAERS Safety Report 16943521 (Version 1)
Quarter: 2019Q4

REPORT INFORMATION
  Report Type: Report from Study
  Country: None (occurrence: US)
  Receive Date: 20191022
  Receipt Date: 20191022
  Transmission Date: 20200122
  Serious: Yes (Hospitalization, Other)
  Sender: FDA-Public Use
  Company Number: US-ABBVIE-19K-163-2961788-00

PATIENT
  Sex: Female

DRUGS (2)
  1. HUMIRA [Suspect]
     Active Substance: ADALIMUMAB
     Dosage: CITRATE FREE
     Route: 058
  2. HUMIRA [Suspect]
     Active Substance: ADALIMUMAB
     Indication: RHEUMATOID ARTHRITIS
     Dosage: CITRATE FREE
     Route: 058

REACTIONS (11)
  - Post-traumatic stress disorder [Recovering/Resolving]
  - Fall [Recovering/Resolving]
  - Sclerotherapy [Recovered/Resolved]
  - Spinal nerve stimulator implantation [Not Recovered/Not Resolved]
  - Large intestine polyp [Recovered/Resolved]
  - Weight decreased [Not Recovered/Not Resolved]
  - Muscular weakness [Recovering/Resolving]
  - Wound [Recovered/Resolved]
  - Localised infection [Recovered/Resolved]
  - Skin ulcer [Recovered/Resolved]
  - Hospitalisation [Recovered/Resolved]
